FAERS Safety Report 25763754 (Version 1)
Quarter: 2025Q3

REPORT INFORMATION
  Report Type: Spontaneous
  Country: US (occurrence: US)
  Receive Date: 20250905
  Receipt Date: 20250905
  Transmission Date: 20251021
  Serious: No
  Sender: DOMPE FARMACEUTICI
  Company Number: US-FARMAPROD-202410-3783

PATIENT
  Sex: Female
  Weight: 53.98 kg

DRUGS (24)
  1. OXERVATE [Suspect]
     Active Substance: CENEGERMIN-BKBJ
     Indication: Neurotrophic keratopathy
     Route: 047
     Dates: start: 20241020
  2. OXERVATE [Suspect]
     Active Substance: CENEGERMIN-BKBJ
  3. OXERVATE [Suspect]
     Active Substance: CENEGERMIN-BKBJ
  4. LATANOPROST [Concomitant]
     Active Substance: LATANOPROST
  5. BRIMONIDINE TARTRATE\DORZOLAMIDE HYDROCHLORIDE [Concomitant]
     Active Substance: BRIMONIDINE TARTRATE\DORZOLAMIDE HYDROCHLORIDE
  6. B12 ACTIVE [Concomitant]
  7. CENTRUM WOMEN IMMUNE MINIS [Concomitant]
  8. VITAMIN D2 [Concomitant]
     Active Substance: ERGOCALCIFEROL
  9. CALCIUM [Concomitant]
     Active Substance: CALCIUM
  10. LISINOPRIL [Concomitant]
     Active Substance: LISINOPRIL
  11. FAMOTIDINE [Concomitant]
     Active Substance: FAMOTIDINE
  12. CLONIDINE HYDROCHLORIDE [Concomitant]
     Active Substance: CLONIDINE HYDROCHLORIDE
  13. HYOSCYAMINE SULFATE [Concomitant]
     Active Substance: HYOSCYAMINE SULFATE
  14. LEVOTHYROXINE SODIUM [Concomitant]
     Active Substance: LEVOTHYROXINE SODIUM
  15. LEVOTHYROXINE SODIUM [Concomitant]
     Active Substance: LEVOTHYROXINE SODIUM
  16. NORTRIPTYLINE HYDROCHLORIDE [Concomitant]
     Active Substance: NORTRIPTYLINE HYDROCHLORIDE
  17. VITAMIN D3 [Concomitant]
     Active Substance: CHOLECALCIFEROL
  18. LOSARTAN POTASSIUM [Concomitant]
     Active Substance: LOSARTAN POTASSIUM
  19. PREGABALIN [Concomitant]
     Active Substance: PREGABALIN
  20. HYDRALAZINE HCL [Concomitant]
     Active Substance: HYDRALAZINE HYDROCHLORIDE
  21. ACYCLOVIR [Concomitant]
     Active Substance: ACYCLOVIR
  22. BENADRYL [Concomitant]
     Active Substance: DIPHENHYDRAMINE HYDROCHLORIDE
  23. REFRESH OPTIVE [Concomitant]
     Active Substance: CARBOXYMETHYLCELLULOSE SODIUM\GLYCERIN
  24. LYRICA [Concomitant]
     Active Substance: PREGABALIN

REACTIONS (7)
  - Ocular discomfort [Not Recovered/Not Resolved]
  - Eye irritation [Unknown]
  - Eye pain [Not Recovered/Not Resolved]
  - Ocular hyperaemia [Unknown]
  - Eye irritation [Unknown]
  - Eye swelling [Unknown]
  - Swelling of eyelid [Unknown]
